FAERS Safety Report 4555522-X (Version None)
Quarter: 2005Q1

REPORT INFORMATION
  Report Type: 
  Country: None (occurrence: None)
  Receive Date: 20050118
  Receipt Date: 20050118
  Transmission Date: 20050727
  Serious: Yes (Hospitalization)
  Sender: FDA-Public Use
  Company Number: None

PATIENT
  Age: 69 Year
  Sex: Male
  Weight: 119 kg

DRUGS (7)
  1. PRAVACHOL [Suspect]
     Indication: RENAL FAILURE ACUTE
     Dosage: DAILY, PO/2-3 YEARS
     Route: 048
  2. PRAVACHOL [Suspect]
     Indication: RHABDOMYOLYSIS
     Dosage: DAILY, PO/2-3 YEARS
     Route: 048
  3. PREDNISONE [Concomitant]
  4. FLOMAX [Concomitant]
  5. METOPROLOL [Concomitant]
  6. SYNTHROID [Concomitant]
  7. ZETIA [Concomitant]

REACTIONS (4)
  - RENAL FAILURE ACUTE [None]
  - RHABDOMYOLYSIS [None]
  - SEPSIS [None]
  - URINARY TRACT INFECTION [None]
